FAERS Safety Report 7959721 (Version 3)
Quarter: 2013Q2

REPORT INFORMATION
  Report Type: Report from Study
  Country: BR (occurrence: BR)
  Receive Date: 20110525
  Receipt Date: 20130425
  Transmission Date: 20140414
  Serious: Yes (Other)
  Sender: FDA-Public Use
  Company Number: PHHY2011BR41943

PATIENT
  Sex: Male

DRUGS (1)
  1. RITALINA [Suspect]
     Dosage: UNK UKN, UNK

REACTIONS (4)
  - Drug withdrawal syndrome [Unknown]
  - Drug dependence [Unknown]
  - Irritability [Unknown]
  - Asthenia [Unknown]
